FAERS Safety Report 12710836 (Version 1)
Quarter: 2016Q3

REPORT INFORMATION
  Report Type: Spontaneous
  Country: JP (occurrence: JP)
  Receive Date: 20160902
  Receipt Date: 20160902
  Transmission Date: 20161109
  Serious: Yes (Other)
  Sender: FDA-Public Use
  Company Number: JP-ASTELLAS-2016JP014072

PATIENT

DRUGS (1)
  1. PROGRAF [Suspect]
     Active Substance: TACROLIMUS\TACROLIMUS ANHYDROUS
     Indication: BONE MARROW TRANSPLANT
     Dosage: 0.7 MG, TWICE DAILY
     Route: 048

REACTIONS (1)
  - Pneumatosis [Unknown]

NARRATIVE: CASE EVENT DATE: 20160822
